FAERS Safety Report 21635903 (Version 1)
Quarter: 2022Q4

REPORT INFORMATION
  Report Type: Spontaneous
  Country: DE (occurrence: DE)
  Receive Date: 20221123
  Receipt Date: 20221123
  Transmission Date: 20230113
  Serious: Yes (Other)
  Sender: FDA-Public Use
  Company Number: DE-BRISTOL-MYERS SQUIBB COMPANY-2022-142401

PATIENT
  Age: 68 Year
  Sex: Male

DRUGS (1)
  1. OPDIVO [Suspect]
     Active Substance: NIVOLUMAB
     Indication: Malignant melanoma
     Route: 065

REACTIONS (16)
  - Drug eruption [Unknown]
  - Vitiligo [Unknown]
  - Alopecia [Unknown]
  - Dermatosis [Unknown]
  - Lichen planus [Unknown]
  - Psoriasis [Unknown]
  - Cutaneous lupus erythematosus [Unknown]
  - Erythema multiforme [Unknown]
  - Rosacea [Unknown]
  - Urticaria [Unknown]
  - Toxic epidermal necrolysis [Unknown]
  - Stevens-Johnson syndrome [Unknown]
  - Immune-mediated enterocolitis [Unknown]
  - Faecal calprotectin increased [Unknown]
  - Eosinophilia [Unknown]
  - Hair colour changes [Unknown]

NARRATIVE: CASE EVENT DATE: 20210401
